FAERS Safety Report 6477654-1 (Version None)
Quarter: 2009Q4

REPORT INFORMATION
  Report Type: 
  Country: None (occurrence: None)
  Receive Date: 20091207
  Receipt Date: 20091012
  Transmission Date: 20100525
  Serious: No
  Sender: FDA-Public Use
  Company Number: US-BAYER-200937106NA

PATIENT
  Age: 46 Year
  Sex: Male
  Weight: 88 kg

DRUGS (4)
  1. ULTRAVIST 300 [Suspect]
     Indication: ANGIOGRAM
     Dosage: TOTAL DAILY DOSE: 110 ML  UNIT DOSE: 200 ML
     Route: 042
     Dates: start: 20091012, end: 20091012
  2. ATENOLOL [Concomitant]
  3. DIOVAN [Concomitant]
  4. CRESTOR [Concomitant]

REACTIONS (1)
  - URTICARIA [None]
